FAERS Safety Report 16698260 (Version 1)
Quarter: 2019Q3

REPORT INFORMATION
  Report Type: Spontaneous
  Country: FR (occurrence: FR)
  Receive Date: 20190813
  Receipt Date: 20190813
  Transmission Date: 20191004
  Serious: Yes (Hospitalization, Other)
  Sender: FDA-Public Use
  Company Number: FR-MYLANLABS-2019M1075372

PATIENT
  Age: 48 Year
  Sex: Female

DRUGS (1)
  1. ZOLPIDEM [Suspect]
     Active Substance: ZOLPIDEM TARTRATE
     Indication: PRODUCT USED FOR UNKNOWN INDICATION
     Dosage: 80 MILLIGRAM, QD
     Route: 048

REACTIONS (3)
  - Intentional product use issue [Recovering/Resolving]
  - Overdose [Recovered/Resolved with Sequelae]
  - Drug dependence [Recovering/Resolving]
